FAERS Safety Report 11170659 (Version 1)
Quarter: 2015Q2

REPORT INFORMATION
  Report Type: Spontaneous
  Country: US (occurrence: US)
  Receive Date: 20150608
  Receipt Date: 20150608
  Transmission Date: 20150821
  Serious: No
  Sender: FDA-Public Use
  Company Number: US-DRREDDYS-USA/USA/14/0041623

PATIENT
  Age: 66 Year
  Sex: Male
  Weight: 74.8 kg

DRUGS (1)
  1. FEXOFENADINE HCL [Suspect]
     Active Substance: FEXOFENADINE HYDROCHLORIDE
     Indication: HYPERSENSITIVITY
     Route: 048
     Dates: start: 20140707, end: 20140708

REACTIONS (4)
  - Fatigue [Recovering/Resolving]
  - Abnormal dreams [Recovering/Resolving]
  - Wrong technique in drug usage process [Unknown]
  - Insomnia [Recovering/Resolving]

NARRATIVE: CASE EVENT DATE: 20140707
